FAERS Safety Report 20034931 (Version 1)
Quarter: 2021Q4

REPORT INFORMATION
  Report Type: Spontaneous
  Country: IN (occurrence: IN)
  Receive Date: 20211104
  Receipt Date: 20211104
  Transmission Date: 20220303
  Serious: Yes (Other)
  Sender: FDA-Public Use
  Company Number: IN-BoehringerIngelheim-2021-BI-135221

PATIENT
  Age: 71 Year
  Sex: Female

DRUGS (8)
  1. GILOTRIF [Suspect]
     Active Substance: AFATINIB
     Indication: Product used for unknown indication
     Dosage: UNKNOWN
     Dates: start: 20201216
  2. IMODIUM [Concomitant]
     Active Substance: LOPERAMIDE HYDROCHLORIDE
     Indication: Diarrhoea
     Dosage: 2MG IF NECESSARY FOR MORE THAN 3 EPISODES PER DAY
     Route: 065
  3. ORAL REHYDRATION SALT [Concomitant]
     Indication: Product used for unknown indication
     Route: 065
  4. OSTEOFOSE [Concomitant]
     Indication: Product used for unknown indication
     Dosage: 70 MG ONCE A WEEK
     Route: 065
  5. SHELCAL [CALCIUM CARBONATE;COLECALCIFEROL] [Concomitant]
     Indication: Product used for unknown indication
     Dosage: 1 TABLET DAILY
     Route: 065
  6. ULTRACET [Concomitant]
     Active Substance: ACETAMINOPHEN\TRAMADOL HYDROCHLORIDE
     Indication: Product used for unknown indication
     Dosage: 1 PRN
     Route: 065
  7. DEXAMETHASONE [Concomitant]
     Active Substance: DEXAMETHASONE
     Indication: Product used for unknown indication
     Dosage: 8MG TWICE DAILY
     Route: 065
  8. PAN [Concomitant]
     Indication: Product used for unknown indication
     Dosage: 40 MG TWICE DAILY
     Route: 065

REACTIONS (3)
  - Non-small cell lung cancer metastatic [Unknown]
  - Central nervous system lesion [Unknown]
  - Lymphadenectomy [Unknown]
